FAERS Safety Report 14310617 (Version 1)
Quarter: 2017Q4

REPORT INFORMATION
  Report Type: Spontaneous
  Country: AU (occurrence: AU)
  Receive Date: 20171220
  Receipt Date: 20171220
  Transmission Date: 20180321
  Serious: Yes (Hospitalization, Other)
  Sender: FDA-Public Use
  Company Number: AU-VISTAPHARM, INC.-VER201712-001378

PATIENT
  Age: 29 Year
  Sex: Female

DRUGS (1)
  1. VALPROIC ACID. [Suspect]
     Active Substance: VALPROIC ACID
     Indication: GENERALISED TONIC-CLONIC SEIZURE

REACTIONS (6)
  - Rhabdomyolysis [Unknown]
  - Myoglobinuria [Unknown]
  - Lethargy [Unknown]
  - Depression [Unknown]
  - Condition aggravated [Unknown]
  - Fatigue [Unknown]
